FAERS Safety Report 17031971 (Version 1)
Quarter: 2019Q4

REPORT INFORMATION
  Report Type: Spontaneous
  Country: US (occurrence: US)
  Receive Date: 20191113
  Receipt Date: 20191113
  Transmission Date: 20200122
  Serious: No
  Sender: FDA-Public Use
  Company Number: None

PATIENT
  Age: 50 Year
  Sex: Female

DRUGS (10)
  1. DULOXETINE CAP 60MG [Concomitant]
     Dates: start: 20191024
  2. FOLIC ACID TAB 1000MCG [Concomitant]
     Dates: start: 20191024
  3. TRAZADONE TAB 100MG [Concomitant]
     Dates: start: 20191003
  4. PREDNISONE TAB 5MG [Concomitant]
     Active Substance: PREDNISONE
     Dates: start: 20070629
  5. LAMOTRIGINE TAB 100MG [Concomitant]
     Dates: start: 20190130
  6. DICLOFENAC TAB 75MG DR [Concomitant]
     Dates: start: 20190508
  7. HUMIRA [Suspect]
     Active Substance: ADALIMUMAB
     Indication: PRODUCT USED FOR UNKNOWN INDICATION
     Route: 058
     Dates: start: 20190430
  8. METHOTREXATE TAB 2.5MG [Concomitant]
     Active Substance: METHOTREXATE
     Dates: start: 20190826
  9. GABAPENTIN TAB 600MG [Concomitant]
     Dates: start: 20190920
  10. BACLOFEN TAB 10MG [Concomitant]
     Dates: start: 20190924

REACTIONS (2)
  - Pruritus [None]
  - Arthralgia [None]

NARRATIVE: CASE EVENT DATE: 20191030
